FAERS Safety Report 8998236 (Version 1)
Quarter: 2013Q1

REPORT INFORMATION
  Report Type: Report from Study
  Country: US (occurrence: US)
  Receive Date: 20130104
  Receipt Date: 20130104
  Transmission Date: 20140127
  Serious: No
  Sender: FDA-Public Use
  Company Number: US-VERTEX PHARMACEUTICALS INC.-2013-000097

PATIENT
  Sex: Female

DRUGS (3)
  1. VX-950 (TELAPREVIR) [Suspect]
     Indication: HEPATITIS C
     Dosage: 750 MG, TID
     Route: 048
     Dates: start: 2012
  2. PEGASYS [Suspect]
     Indication: HEPATITIS C
     Dosage: 180 ?G, QW
     Route: 058
     Dates: start: 2012
  3. RIBAPAK [Suspect]
     Indication: HEPATITIS C
     Dosage: 600 MG IN AM, 400 MG IN PM
     Dates: start: 2012

REACTIONS (7)
  - Drug dose omission [Recovered/Resolved]
  - Injection site bruising [Unknown]
  - Fatigue [Unknown]
  - Erythema [Unknown]
  - Vomiting [Unknown]
  - Pruritus [Unknown]
  - Nausea [Unknown]
